FAERS Safety Report 24609516 (Version 1)
Quarter: 2024Q4

REPORT INFORMATION
  Report Type: Spontaneous
  Country: GB (occurrence: GB)
  Receive Date: 20241112
  Receipt Date: 20241112
  Transmission Date: 20250115
  Serious: Yes (Other)
  Sender: GLAXOSMITHKLINE
  Company Number: None

PATIENT

DRUGS (1)
  1. ZYBAN [Suspect]
     Active Substance: BUPROPION HYDROCHLORIDE
     Indication: Ex-tobacco user
     Dosage: 150 MG; 1X 150MG/7DAYS. 2X150MG
     Route: 065
     Dates: start: 20241022, end: 20241103

REACTIONS (2)
  - Tinnitus [Not Recovered/Not Resolved]
  - Deafness [Unknown]

NARRATIVE: CASE EVENT DATE: 20241001
